FAERS Safety Report 10731869 (Version 1)
Quarter: 2015Q1

REPORT INFORMATION
  Report Type: Spontaneous
  Country: US (occurrence: None)
  Receive Date: 20150120
  Receipt Date: 20150120
  Transmission Date: 20150721
  Serious: Yes (Death)
  Sender: FDA-Public Use
  Company Number: 2015010118

PATIENT
  Age: 36 Year
  Sex: Female

DRUGS (3)
  1. CARISOPRODOL (CARISOPRODOL) [Suspect]
     Active Substance: CARISOPRODOL
  2. ACETAMINOPHEN (ACETAMINOPHEN) [Suspect]
     Active Substance: ACETAMINOPHEN
  3. HYDROCODONE (HYDROCODONE) [Suspect]
     Active Substance: HYDROCODONE

REACTIONS (4)
  - Respiratory arrest [None]
  - Cardiac arrest [None]
  - Completed suicide [None]
  - Exposure via ingestion [None]

NARRATIVE: CASE EVENT DATE: 2013
